FAERS Safety Report 9329309 (Version 1)
Quarter: 2013Q2

REPORT INFORMATION
  Report Type: Spontaneous
  Country: US (occurrence: US)
  Receive Date: 20130604
  Receipt Date: 20130604
  Transmission Date: 20140414
  Serious: No
  Sender: FDA-Public Use
  Company Number: US-SANOFI-AVENTIS-2012SA076428

PATIENT
  Age: 61 Year
  Sex: Female

DRUGS (6)
  1. LANTUS SOLOSTAR [Suspect]
     Indication: TYPE 2 DIABETES MELLITUS
     Dosage: PRODUCT STARTED: 3-4 YEARS AGO?DOSE: 8-15 UNITS
     Route: 058
  2. LANTUS SOLOSTAR [Suspect]
     Indication: TYPE 2 DIABETES MELLITUS
     Dosage: PRODUCT STARTED: 3-4 YEARS AGO?DOSE: 8-15 UNITS
     Route: 058
  3. SOLOSTAR [Suspect]
     Indication: TYPE 2 DIABETES MELLITUS
  4. SOLOSTAR [Suspect]
     Indication: TYPE 2 DIABETES MELLITUS
  5. HUMALOG [Suspect]
     Indication: TYPE 2 DIABETES MELLITUS
     Route: 065
  6. METFORMIN [Suspect]
     Indication: TYPE 2 DIABETES MELLITUS
     Route: 065

REACTIONS (3)
  - Malaise [Unknown]
  - Stress [Unknown]
  - Blood glucose increased [Unknown]
